FAERS Safety Report 14165859 (Version 1)
Quarter: 2017Q4

REPORT INFORMATION
  Report Type: Spontaneous
  Country: AT (occurrence: AT)
  Receive Date: 20171107
  Receipt Date: 20171107
  Transmission Date: 20180321
  Serious: Yes (Life-Threatening)
  Sender: FDA-Public Use
  Company Number: AT-TEVA-821243ISR

PATIENT
  Age: 44 Year
  Sex: Male

DRUGS (1)
  1. NAPROBENE 500MG FILMTABLETTEN [Suspect]
     Active Substance: NAPROXEN
     Indication: PAIN
     Route: 048
     Dates: start: 20170817, end: 20170817

REACTIONS (3)
  - Enlarged uvula [Recovered/Resolved]
  - Pruritus [Recovered/Resolved]
  - Urticaria [Recovered/Resolved]

NARRATIVE: CASE EVENT DATE: 20170817
